FAERS Safety Report 4812137-3 (Version None)
Quarter: 2005Q4

REPORT INFORMATION
  Report Type: 
  Country: None (occurrence: None)
  Receive Date: 20051028
  Receipt Date: 20040813
  Transmission Date: 20060501
  Serious: Yes (Other)
  Sender: FDA-Public Use
  Company Number: US-GLAXOSMITHKLINE-A0522218A

PATIENT
  Age: 63 Year
  Sex: Male

DRUGS (1)
  1. ADVAIR DISKUS 100/50 [Suspect]
     Indication: BRONCHIECTASIS
     Route: 055
     Dates: start: 20010101

REACTIONS (1)
  - CANDIDIASIS [None]
